FAERS Safety Report 10910877 (Version 2)
Quarter: 2015Q2

REPORT INFORMATION
  Report Type: Report from Study
  Country: US (occurrence: US)
  Receive Date: 20150312
  Receipt Date: 20150501
  Transmission Date: 20150821
  Serious: No
  Sender: FDA-Public Use
  Company Number: US-VERTEX PHARMACEUTICALS-2015-000691

PATIENT
  Age: 49 Year
  Sex: Female

DRUGS (2)
  1. KALYDECO [Suspect]
     Active Substance: IVACAFTOR
     Indication: CYSTIC FIBROSIS
     Dosage: Q12H
     Route: 048
     Dates: start: 20150226
  2. KALYDECO [Suspect]
     Active Substance: IVACAFTOR
     Dosage: Q12H
     Route: 048
     Dates: start: 20150306

REACTIONS (4)
  - Headache [Unknown]
  - Hypoxia [Unknown]
  - Abdominal pain upper [Unknown]
  - Diarrhoea [Unknown]

NARRATIVE: CASE EVENT DATE: 20150226
